FAERS Safety Report 21535676 (Version 1)
Quarter: 2022Q4

REPORT INFORMATION
  Report Type: Spontaneous
  Country: US (occurrence: US)
  Receive Date: 20221101
  Receipt Date: 20221101
  Transmission Date: 20230113
  Serious: No
  Sender: FDA-Public Use
  Company Number: US-PFIZER INC-202201262453

PATIENT
  Age: 57 Year
  Sex: Male

DRUGS (1)
  1. PAXLOVID [Suspect]
     Active Substance: NIRMATRELVIR\RITONAVIR
     Indication: COVID-19 treatment
     Dosage: UNK

REACTIONS (9)
  - Headache [Not Recovered/Not Resolved]
  - Dizziness [Unknown]
  - Dysgeusia [Unknown]
  - Asthenia [Unknown]
  - Nausea [Unknown]
  - Body temperature increased [Unknown]
  - Cough [Unknown]
  - Vomiting [Unknown]
  - Therapeutic product effect incomplete [Unknown]
